FAERS Safety Report 10460950 (Version 1)
Quarter: 2014Q3

REPORT INFORMATION
  Report Type: Spontaneous
  Country: US (occurrence: None)
  Receive Date: 20140917
  Receipt Date: 20140917
  Transmission Date: 20150326
  Serious: Yes (Life-Threatening)
  Sender: FDA-Public Use
  Company Number: None

PATIENT
  Age: 34 Year
  Sex: Female
  Weight: 52.16 kg

DRUGS (1)
  1. QUETIAPINE FUMARATE. [Suspect]
     Active Substance: QUETIAPINE FUMARATE
     Indication: BIPOLAR II DISORDER
     Dosage: 2.5 PILLS?TWICE DAILY?TAKEN BY MOUTH
     Route: 048
     Dates: start: 20140401, end: 20140915

REACTIONS (6)
  - Suicide attempt [None]
  - Irritability [None]
  - Suicidal ideation [None]
  - Tardive dyskinesia [None]
  - Tachycardia [None]
  - Sedation [None]

NARRATIVE: CASE EVENT DATE: 20140912
